FAERS Safety Report 7620727-8 (Version None)
Quarter: 2011Q3

REPORT INFORMATION
  Report Type: 
  Country: None (occurrence: None)
  Receive Date: 20110719
  Receipt Date: 20110712
  Transmission Date: 20111222
  Serious: Yes (Other)
  Sender: FDA-Public Use
  Company Number: JP-GLAXOSMITHKLINE-B0730746A

PATIENT
  Sex: Male

DRUGS (3)
  1. TAMSULOSIN HCL [Concomitant]
     Indication: BENIGN PROSTATIC HYPERPLASIA
     Dosage: .2MG PER DAY
     Route: 048
  2. AVOLVE [Suspect]
     Indication: BENIGN PROSTATIC HYPERPLASIA
     Dosage: .5MG PER DAY
     Route: 048
     Dates: start: 20091001
  3. ACARBOSE [Concomitant]
     Indication: THROMBOSIS
     Dosage: 100MG PER DAY
     Route: 048

REACTIONS (1)
  - BREAST MASS [None]
